FAERS Safety Report 24566415 (Version 4)
Quarter: 2025Q1

REPORT INFORMATION
  Report Type: Spontaneous
  Country: US (occurrence: US)
  Receive Date: 20241030
  Receipt Date: 20250103
  Transmission Date: 20250409
  Serious: No
  Sender: PFIZER
  Company Number: US-PFIZER INC-202400288968

PATIENT
  Age: 81 Year
  Sex: Female
  Weight: 89.796 kg

DRUGS (2)
  1. ZITHROMAX [Suspect]
     Active Substance: AZITHROMYCIN DIHYDRATE
     Indication: Tooth infection
     Dosage: 250 MG, 2X/DAY (FOR 1ST DAY)/2 PILLS ONE DAY
  2. ZITHROMAX [Suspect]
     Active Substance: AZITHROMYCIN DIHYDRATE
     Dosage: 250 MG, DAILY (FOR 4 DAYS)/1 PILL FOR THE OTHER 4 DAYS

REACTIONS (2)
  - Drug ineffective [Unknown]
  - Diarrhoea [Not Recovered/Not Resolved]
